FAERS Safety Report 5935900-4 (Version None)
Quarter: 2008Q4

REPORT INFORMATION
  Report Type: 
  Country: None (occurrence: None)
  Receive Date: 20081030
  Receipt Date: 20071114
  Transmission Date: 20090506
  Serious: No
  Sender: FDA-Public Use
  Company Number: A0694500A

PATIENT
  Age: 54 Year
  Sex: Female

DRUGS (4)
  1. IMITREX [Suspect]
     Indication: MIGRAINE
     Dosage: 20MG PER DAY
     Route: 045
     Dates: start: 20071111, end: 20071111
  2. ALBUTEROL [Concomitant]
  3. OXYCONTIN [Concomitant]
  4. TOPAMAX [Concomitant]

REACTIONS (4)
  - DYSGEUSIA [None]
  - MUSCLE TIGHTNESS [None]
  - MUSCULOSKELETAL STIFFNESS [None]
  - PRODUCT QUALITY ISSUE [None]
